FAERS Safety Report 7267276-7 (Version None)
Quarter: 2011Q1

REPORT INFORMATION
  Report Type: 
  Country: None (occurrence: None)
  Receive Date: 20110201
  Receipt Date: 20110121
  Transmission Date: 20110831
  Serious: Yes (Other)
  Sender: FDA-Public Use
  Company Number: TR-BAXTER-2011BH001872

PATIENT
  Age: 17 Year
  Sex: Male
  Weight: 40 kg

DRUGS (1)
  1. GAMMAGARD LIQUID [Suspect]
     Indication: HYPOGAMMAGLOBULINAEMIA
     Route: 042
     Dates: start: 20101230, end: 20101230

REACTIONS (3)
  - ERYTHEMA [None]
  - RASH [None]
  - HYPERSENSITIVITY [None]
